FAERS Safety Report 6602595-6 (Version None)
Quarter: 2010Q1

REPORT INFORMATION
  Report Type: 
  Country: None (occurrence: None)
  Receive Date: 20100225
  Receipt Date: 20100224
  Transmission Date: 20100710
  Serious: Yes (Disabling, Other)
  Sender: FDA-Public Use
  Company Number: US-MERCK-0705USA01545

PATIENT
  Age: 50 Year
  Sex: Female
  Weight: 64 kg

DRUGS (2)
  1. FOSAMAX [Suspect]
     Indication: OSTEOPENIA
     Route: 048
     Dates: start: 19970701
  2. FOSAMAX [Suspect]
     Route: 048
     Dates: start: 19990101

REACTIONS (23)
  - ABSCESS [None]
  - ADVERSE EVENT [None]
  - ALCOHOLISM [None]
  - BONE DENSITY DECREASED [None]
  - DEAFNESS [None]
  - DENTAL CARIES [None]
  - DEPRESSION [None]
  - EDENTULOUS [None]
  - FALL [None]
  - GINGIVAL DISORDER [None]
  - IMPAIRED HEALING [None]
  - INFECTION [None]
  - LOOSE TOOTH [None]
  - MEDICAL DEVICE COMPLICATION [None]
  - ORAL INFECTION [None]
  - PAIN [None]
  - PERIODONTAL DISEASE [None]
  - RADIUS FRACTURE [None]
  - SWELLING [None]
  - TOOTH ABSCESS [None]
  - TOOTH LOSS [None]
  - TOOTH RESORPTION [None]
  - WRIST FRACTURE [None]
